FAERS Safety Report 7968959-3 (Version None)
Quarter: 2011Q4

REPORT INFORMATION
  Report Type: 
  Country: None (occurrence: None)
  Receive Date: 20111209
  Receipt Date: 20111129
  Transmission Date: 20120403
  Serious: Yes (Hospitalization, Other)
  Sender: FDA-Public Use
  Company Number: NO-ABBOTT-10P-122-0632784-00

PATIENT
  Sex: Male

DRUGS (5)
  1. BACTRIM [Concomitant]
     Indication: PNEUMOCYSTIS JIROVECI INFECTION
     Dates: start: 20110202, end: 20110216
  2. HUMIRA [Suspect]
  3. HUMIRA [Suspect]
     Indication: CROHN'S DISEASE
     Route: 058
     Dates: start: 20090930, end: 20100216
  4. HUMIRA [Suspect]
  5. PREDNISONE [Concomitant]
     Indication: CROHN'S DISEASE
     Dosage: HIGHEST MAINTAINED DOSE

REACTIONS (2)
  - INTERSTITIAL LUNG DISEASE [None]
  - EOSINOPHILIA [None]
